FAERS Safety Report 10300087 (Version 1)
Quarter: 2014Q3

REPORT INFORMATION
  Report Type: Spontaneous
  Country: FR (occurrence: FR)
  Receive Date: 20140711
  Receipt Date: 20140711
  Transmission Date: 20150326
  Serious: Yes (Other)
  Sender: FDA-Public Use
  Company Number: FR-GLAXOSMITHKLINE-B1010968A

PATIENT
  Age: 7 Month
  Sex: Male

DRUGS (3)
  1. INEXIUM [Concomitant]
     Active Substance: ESOMEPRAZOLE
     Indication: ILL-DEFINED DISORDER
     Route: 065
  2. ZOVIRAX [Suspect]
     Active Substance: ACYCLOVIR
     Indication: MENINGOENCEPHALITIS HERPETIC
     Dosage: 180MG THREE TIMES PER DAY
     Route: 042
     Dates: start: 20140613, end: 20140614
  3. TOPICAL CORTICOSTEROID [Concomitant]
     Indication: ECZEMA
     Route: 061

REACTIONS (2)
  - Localised oedema [Recovered/Resolved]
  - Blister [Recovered/Resolved]

NARRATIVE: CASE EVENT DATE: 20140613
